FAERS Safety Report 15340181 (Version 1)
Quarter: 2018Q3

REPORT INFORMATION
  Report Type: Spontaneous
  Country: IT (occurrence: IT)
  Receive Date: 20180831
  Receipt Date: 20180831
  Transmission Date: 20181010
  Serious: Yes (Other)
  Sender: FDA-Public Use
  Company Number: IT-ALLERGAN-1842213US

PATIENT
  Age: 80 Year
  Sex: Male

DRUGS (2)
  1. TRIPTORELIN PAMOATE UNK [Suspect]
     Active Substance: TRIPTORELIN PAMOATE
     Indication: PROSTATE CANCER
     Dosage: 3.75 MG, SINGLE / MONTH
     Route: 030
     Dates: start: 1996, end: 20130730
  2. CYPROTERONE ACETATE [Suspect]
     Active Substance: CYPROTERONE ACETATE
     Indication: PROSTATE CANCER
     Dosage: 100 MG, QD
     Route: 065
     Dates: start: 1996, end: 20130730

REACTIONS (1)
  - Parkinson^s disease [Recovered/Resolved]
